FAERS Safety Report 8229523 (Version 3)
Quarter: 2013Q1

REPORT INFORMATION
  Report Type: Spontaneous
  Country: US (occurrence: US)
  Receive Date: 20111104
  Receipt Date: 20130327
  Transmission Date: 20140127
  Serious: Yes (Hospitalization, Other)
  Sender: FDA-Public Use
  Company Number: PHEH2011US04735

PATIENT
  Age: 60 Year
  Sex: Female

DRUGS (6)
  1. GILENYA [Suspect]
     Indication: RELAPSING-REMITTING MULTIPLE SCLEROSIS
     Dosage: 0.5 MG, DAILY
     Route: 048
     Dates: start: 20110901, end: 20111027
  2. LISINOPRIL W/HYDROCHLOROTHIAZIDE [Concomitant]
     Dosage: 20/25 MG, UNK
  3. EFEXOR XR [Concomitant]
     Dosage: 150 MG, UNK
  4. SIMVASTATIN [Concomitant]
     Dosage: 20 MG, UNK
  5. FAMPRIDINE [Concomitant]
     Dosage: UNK UKN, UNK
  6. LISINOPRIL [Concomitant]

REACTIONS (17)
  - Convulsion [Unknown]
  - Tremor [Unknown]
  - Haematuria [Recovered/Resolved]
  - Chromaturia [Unknown]
  - Abdominal pain upper [Unknown]
  - Eye disorder [Recovering/Resolving]
  - Aphagia [Unknown]
  - Multiple sclerosis [Recovering/Resolving]
  - Pain in extremity [Not Recovered/Not Resolved]
  - Feeling hot [Recovering/Resolving]
  - Dyskinesia [Recovering/Resolving]
  - Gait disturbance [Recovering/Resolving]
  - Weight decreased [Unknown]
  - Trigeminal neuralgia [Not Recovered/Not Resolved]
  - Pain [Recovering/Resolving]
  - Facial pain [Recovered/Resolved]
  - Suicidal ideation [Unknown]
